FAERS Safety Report 7744800-9 (Version None)
Quarter: 2011Q3

REPORT INFORMATION
  Report Type: 
  Country: None (occurrence: None)
  Receive Date: 20110912
  Receipt Date: 20110912
  Transmission Date: 20111222
  Serious: No
  Sender: FDA-Public Use
  Company Number: None

PATIENT
  Age: 37 Year
  Sex: Female
  Weight: 66.678 kg

DRUGS (1)
  1. ZOLPIDEM TARTRATE [Suspect]
     Indication: INSOMNIA
     Dosage: 10MG
     Route: 048
     Dates: start: 20110721, end: 20110909

REACTIONS (6)
  - BACK PAIN [None]
  - SLEEP-RELATED EATING DISORDER [None]
  - SOMNAMBULISM [None]
  - NERVE COMPRESSION [None]
  - ARTHRITIS [None]
  - IMPAIRED WORK ABILITY [None]
